FAERS Safety Report 21252535 (Version 2)
Quarter: 2022Q4

REPORT INFORMATION
  Report Type: Spontaneous
  Country: US (occurrence: US)
  Receive Date: 20220825
  Receipt Date: 20221018
  Transmission Date: 20230113
  Serious: Yes (Other)
  Sender: FDA-Public Use
  Company Number: US-BRISTOL-MYERS SQUIBB COMPANY-2022-093135

PATIENT
  Age: 70 Year
  Sex: Female
  Weight: 2 kg

DRUGS (1)
  1. REVLIMID [Suspect]
     Active Substance: LENALIDOMIDE
     Indication: Plasma cell myeloma
     Route: 048
     Dates: start: 20220308

REACTIONS (3)
  - Platelet count decreased [Unknown]
  - Conjunctivitis [Unknown]
  - Constipation [Unknown]

NARRATIVE: CASE EVENT DATE: 20220612
